FAERS Safety Report 5470995-6 (Version None)
Quarter: 2007Q3

REPORT INFORMATION
  Report Type: 
  Country: None (occurrence: None)
  Receive Date: 20070928
  Receipt Date: 20070925
  Transmission Date: 20080115
  Serious: Yes (Hospitalization)
  Sender: FDA-Public Use
  Company Number: A0683958A

PATIENT
  Age: 68 Year
  Sex: Female

DRUGS (6)
  1. AVANDIA [Suspect]
     Dosage: 8MG PER DAY
     Route: 048
     Dates: start: 20050101, end: 20070924
  2. BLOOD PRESSURE MEDICATION [Concomitant]
  3. CHOLESTEROL [Concomitant]
  4. UNKNOWN STOMACH MEDICATION [Concomitant]
  5. ARTHRITIS MEDICATION [Concomitant]
  6. ASPIRIN [Concomitant]

REACTIONS (6)
  - ABDOMINAL DISTENSION [None]
  - DYSPNOEA [None]
  - HYPERTENSION [None]
  - OEDEMA PERIPHERAL [None]
  - URINE ODOUR ABNORMAL [None]
  - VISION BLURRED [None]
